FAERS Safety Report 10475879 (Version 3)
Quarter: 2014Q4

REPORT INFORMATION
  Report Type: Other
  Country: IT (occurrence: IT)
  Receive Date: 20140925
  Receipt Date: 20141123
  Transmission Date: 20150528
  Serious: Yes (Other)
  Sender: FDA-Public Use
  Company Number: IT-MYLANLABS-2014M1004919

PATIENT

DRUGS (1)
  1. KETOPROFENE SALE DI LISINA [Suspect]
     Active Substance: KETOPROFEN
     Indication: NEURALGIA
     Dosage: 80 MG, QD
     Route: 048
     Dates: start: 20140828, end: 20140828

REACTIONS (6)
  - Localised oedema [Recovering/Resolving]
  - Dyspnoea [Recovering/Resolving]
  - Urticaria [Recovering/Resolving]
  - Anaphylactic shock [Recovering/Resolving]
  - Lip oedema [Recovering/Resolving]
  - Generalised oedema [Recovering/Resolving]

NARRATIVE: CASE EVENT DATE: 20140828
